FAERS Safety Report 4303883-9 (Version None)
Quarter: 2004Q1

REPORT INFORMATION
  Report Type: 
  Country: None (occurrence: None)
  Receive Date: 20040224
  Receipt Date: 20040224
  Transmission Date: 20041129
  Serious: No
  Sender: FDA-Public Use
  Company Number: None

PATIENT
  Age: 78 Year
  Sex: Male
  Weight: 104 kg

DRUGS (1)
  1. PROPOFOL [Suspect]
     Indication: SEDATIVE THERAPY
     Dosage: PROPOFOL DRIP IV 80 MG
     Route: 042
     Dates: start: 20040105

REACTIONS (4)
  - CYANOSIS [None]
  - GALLOP RHYTHM PRESENT [None]
  - HEART RATE IRREGULAR [None]
  - RESPIRATORY DISTRESS [None]
